FAERS Safety Report 9232969 (Version 1)
Quarter: 2013Q2

REPORT INFORMATION
  Report Type: Spontaneous
  Country: US (occurrence: None)
  Receive Date: 20130415
  Receipt Date: 20130415
  Transmission Date: 20140414
  Serious: Yes (Other)
  Sender: FDA-Public Use
  Company Number: None

PATIENT
  Age: 59 Year
  Sex: Female
  Weight: 73.48 kg

DRUGS (1)
  1. LISINOPRIL [Suspect]
     Indication: PROPHYLAXIS
     Route: 048

REACTIONS (5)
  - Scotoma [None]
  - Eye swelling [None]
  - Papilloedema [None]
  - Colour blindness [None]
  - Optic ischaemic neuropathy [None]
